FAERS Safety Report 9049980 (Version 1)
Quarter: 2013Q1

REPORT INFORMATION
  Report Type: Spontaneous
  Country: ES (occurrence: ES)
  Receive Date: 20130205
  Receipt Date: 20130205
  Transmission Date: 20140127
  Serious: Yes (Hospitalization)
  Sender: FDA-Public Use
  Company Number: ES-ELI_LILLY_AND_COMPANY-ES201301008407

PATIENT
  Age: 79 None
  Sex: Female
  Weight: 57 kg

DRUGS (10)
  1. FORSTEO [Suspect]
     Indication: OSTEOPOROSIS
     Dosage: 20 UG, QD
     Route: 058
     Dates: start: 20120323
  2. FORSTEO [Suspect]
     Dosage: 20 UG, QD
     Route: 058
  3. LYRICA [Concomitant]
     Indication: PAIN
     Dosage: 75 MG, BID
     Route: 048
  4. ATORVASTATINA [Concomitant]
     Indication: HYPERCHOLESTEROLAEMIA
     Dosage: 40 MG, QD
     Route: 048
  5. ADIRO [Concomitant]
     Dosage: 100 MG, QD
     Route: 048
  6. EZETROL [Concomitant]
     Dosage: 10 MG, QD
     Route: 048
  7. ENALAPRIL [Concomitant]
     Indication: GASTRIC DISORDER
     Dosage: 20 MG, QD
     Route: 048
  8. HIDROSALURETIL [Concomitant]
     Dosage: UNK, QD
     Route: 048
  9. SITRAX [Concomitant]
     Indication: PAIN
     Dosage: 75 MG, QD
     Route: 048
  10. INSULIN [Concomitant]
     Dosage: UNK
     Dates: start: 2006

REACTIONS (3)
  - Femur fracture [Recovering/Resolving]
  - Fall [Recovering/Resolving]
  - Hyperglycaemia [Recovered/Resolved]
